FAERS Safety Report 22203053 (Version 2)
Quarter: 2023Q2

REPORT INFORMATION
  Report Type: Report from Study
  Country: BE (occurrence: BE)
  Receive Date: 20230412
  Receipt Date: 20230421
  Transmission Date: 20230722
  Serious: Yes (Death)
  Sender: FDA-Public Use
  Company Number: BE-DSJP-DSU-2023-114212

PATIENT
  Age: 70 Year
  Sex: Female

DRUGS (2)
  1. ENHERTU [Suspect]
     Active Substance: FAM-TRASTUZUMAB DERUXTECAN-NXKI
     Indication: HER2 positive breast cancer
     Dosage: 5.4 MG/KG, ONCE EVERY 3 WK
     Route: 042
     Dates: start: 20221213, end: 20221213
  2. ENHERTU [Suspect]
     Active Substance: FAM-TRASTUZUMAB DERUXTECAN-NXKI
     Dosage: 5.3 MG/KG, ONCE EVERY 3 WK
     Route: 042
     Dates: start: 20230104, end: 20230104

REACTIONS (2)
  - Asthenia [Fatal]
  - Decreased appetite [Fatal]

NARRATIVE: CASE EVENT DATE: 20230201
